FAERS Safety Report 8491508 (Version 2)
Quarter: 2013Q3

REPORT INFORMATION
  Report Type: Report from Study
  Country: IT (occurrence: IT)
  Receive Date: 20120403
  Receipt Date: 20130708
  Transmission Date: 20140515
  Serious: Yes (Other)
  Sender: FDA-Public Use
  Company Number: IT-ROCHE-1050933

PATIENT
  Sex: 0

DRUGS (3)
  1. PEG-INTERFERON ALFA 2A [Suspect]
     Indication: HEPATITIS C
     Route: 065
  2. RIBAVIRIN [Suspect]
     Indication: HEPATITIS C
     Dosage: 800-1200 MG
     Route: 065
  3. PEGINTERFERON ALFA-2B [Suspect]
     Indication: HEPATITIS C
     Route: 065

REACTIONS (8)
  - Encephalopathy [Unknown]
  - Anaemia [Unknown]
  - Neutropenia [Unknown]
  - Hepatocellular carcinoma [Unknown]
  - Fatigue [Unknown]
  - Influenza like illness [Unknown]
  - Depression [Unknown]
  - Multiple injuries [Unknown]
